FAERS Safety Report 18253044 (Version 1)
Quarter: 2020Q3

REPORT INFORMATION
  Report Type: Spontaneous
  Country: US (occurrence: US)
  Receive Date: 20200910
  Receipt Date: 20200910
  Transmission Date: 20201103
  Serious: No
  Sender: FDA-Public Use
  Company Number: US-PFIZER INC-2020348247

PATIENT
  Sex: Female
  Weight: 82.1 kg

DRUGS (2)
  1. GABAPENTIN. [Suspect]
     Active Substance: GABAPENTIN
     Indication: MUSCLE SPASMS
     Dosage: 100 MG, 2X/DAY [2 A DAY, 100 MG AND I WOULD TAKE THEM AT NIGHT]
  2. GABAPENTIN. [Suspect]
     Active Substance: GABAPENTIN
     Dosage: 200 MG, DAILY
     Route: 048
     Dates: start: 20200904

REACTIONS (5)
  - Product use in unapproved indication [Unknown]
  - Pain [Unknown]
  - Off label use [Unknown]
  - Eye irritation [Unknown]
  - Vision blurred [Unknown]
